FAERS Safety Report 7322024-7 (Version None)
Quarter: 2011Q1

REPORT INFORMATION
  Report Type: 
  Country: None (occurrence: None)
  Receive Date: 20110216
  Receipt Date: 20110210
  Transmission Date: 20110831
  Serious: Yes (Death, Hospitalization)
  Sender: FDA-Public Use
  Company Number: 2010AC000124

PATIENT
  Age: 71 Year
  Sex: Female

DRUGS (17)
  1. WARFARIN SODIUM [Concomitant]
  2. GLIMEPIRIDE [Concomitant]
  3. ROCEPHIN [Concomitant]
  4. NYSTATIN [Concomitant]
  5. DIGOXIN [Suspect]
     Indication: ARRHYTHMIA
     Dosage: 0.25 MG; QD; PO
     Route: 048
     Dates: start: 20060119, end: 20080127
  6. FUROSEMIDE [Concomitant]
  7. ENALAPRIL MALEATE [Concomitant]
  8. PORPANOLOL [Concomitant]
  9. VITAMIN K TAB [Concomitant]
  10. ZOLOFT [Concomitant]
  11. POTASSIUM [Concomitant]
  12. CARDIZEM [Concomitant]
  13. ZITHROMAX [Concomitant]
  14. SIMVASTATIN [Concomitant]
  15. AMARYL [Concomitant]
  16. OXYGEN [Concomitant]
  17. MORPHINE [Concomitant]

REACTIONS (23)
  - ATRIAL FIBRILLATION [None]
  - QRS AXIS ABNORMAL [None]
  - ATELECTASIS [None]
  - MULTIPLE INJURIES [None]
  - CONFUSIONAL STATE [None]
  - RALES [None]
  - INTERNATIONAL NORMALISED RATIO INCREASED [None]
  - CYANOSIS [None]
  - CARDIOMEGALY [None]
  - CONDITION AGGRAVATED [None]
  - ECONOMIC PROBLEM [None]
  - BLOOD SODIUM DECREASED [None]
  - CARDIOACTIVE DRUG LEVEL INCREASED [None]
  - AORTIC STENOSIS [None]
  - OXYGEN SATURATION DECREASED [None]
  - CARDIAC MURMUR [None]
  - DEATH OF RELATIVE [None]
  - CARDIAC ARREST [None]
  - PLEURAL EFFUSION [None]
  - PULMONARY CONGESTION [None]
  - CARDIAC FAILURE CONGESTIVE [None]
  - SURGERY [None]
  - HYPOAESTHESIA [None]
